FAERS Safety Report 5296707-7 (Version None)
Quarter: 2007Q2

REPORT INFORMATION
  Report Type: 
  Country: None (occurrence: None)
  Receive Date: 20070413
  Receipt Date: 20070402
  Transmission Date: 20071010
  Serious: Yes (Other)
  Sender: FDA-Public Use
  Company Number: US-PFIZER INC-2007024147

PATIENT
  Sex: Female
  Weight: 81.6 kg

DRUGS (8)
  1. CHANTIX [Suspect]
     Indication: SMOKING CESSATION THERAPY
     Dates: start: 20070317, end: 20070326
  2. ZOLOFT [Concomitant]
  3. OXYCODONE HCL [Concomitant]
  4. NEXIUM [Concomitant]
  5. SOMA [Concomitant]
  6. ALBUTEROL [Concomitant]
  7. ALPRAZOLAM [Concomitant]
  8. AMIODARONE HCL [Concomitant]

REACTIONS (7)
  - BLOOD PRESSURE INCREASED [None]
  - CHEST PAIN [None]
  - DECREASED APPETITE [None]
  - HEART RATE INCREASED [None]
  - MALAISE [None]
  - NAUSEA [None]
  - PAIN IN EXTREMITY [None]
